FAERS Safety Report 4492782-8 (Version None)
Quarter: 2004Q4

REPORT INFORMATION
  Report Type: 
  Country: None (occurrence: None)
  Receive Date: 20041029
  Receipt Date: 20041015
  Transmission Date: 20050328
  Serious: Yes (Disabling)
  Sender: FDA-Public Use
  Company Number: 200409234

PATIENT
  Age: 35 Year
  Sex: Male

DRUGS (3)
  1. GATIFLOXACIN [Suspect]
     Indication: CHALAZION
     Dosage: 1 DROP QID EYE
     Dates: start: 20040921, end: 20040930
  2. CRAVID [Concomitant]
  3. NEO-MEDROL EYE-EAR [Concomitant]

REACTIONS (2)
  - BLEPHARITIS [None]
  - CONJUNCTIVITIS [None]
